FAERS Safety Report 19431541 (Version 1)
Quarter: 2021Q2

REPORT INFORMATION
  Report Type: Spontaneous
  Country: ES (occurrence: ES)
  Receive Date: 20210618
  Receipt Date: 20210618
  Transmission Date: 20210717
  Serious: Yes (Hospitalization, Other)
  Sender: FDA-Public Use
  Company Number: ES-TERSERA THERAPEUTICS LLC-2021TRS002791

PATIENT

DRUGS (6)
  1. PALBOCICLIB [Suspect]
     Active Substance: PALBOCICLIB
     Indication: BREAST CANCER METASTATIC
     Dosage: 125 MG, CYCLIC (EVERY 24H, 21/28D)
     Route: 048
     Dates: start: 201905
  2. NATECAL D [Suspect]
     Active Substance: CALCIUM CARBONATE\CHOLECALCIFEROL
     Indication: BREAST CANCER METASTATIC
     Dosage: UNK, CYCLIC
     Route: 048
     Dates: start: 201905
  3. EUTIROX [Concomitant]
     Active Substance: LEVOTHYROXINE SODIUM
     Indication: SECONDARY HYPOTHYROIDISM
     Dosage: 25 UG, 1X/DAY (EVERY 24 HOURS)25UG/INHAL
     Route: 065
  4. GOSERELIN [Suspect]
     Active Substance: GOSERELIN
     Indication: BREAST CANCER METASTATIC
     Dosage: 3.6 MG, EVERY 28 DAYS3.6MG EVERY CYCLE
     Route: 058
     Dates: start: 201905
  5. ZOLEDRONIC ACID [Suspect]
     Active Substance: ZOLEDRONIC ACID
     Indication: BREAST CANCER METASTATIC
     Dosage: 4 MG, EVERY 28 DAYS
     Route: 042
     Dates: start: 201905
  6. LETROZOLE. [Suspect]
     Active Substance: LETROZOLE
     Indication: BREAST CANCER METASTATIC
     Dosage: 2.5 MG, 1X/DAY (EVERY 24 H) (QD)
     Route: 048
     Dates: start: 201905

REACTIONS (12)
  - Upper respiratory tract infection [Unknown]
  - COVID-19 [Unknown]
  - Contusion [Unknown]
  - Anal fissure [Unknown]
  - Pulmonary embolism [Recovered/Resolved]
  - Injury [Unknown]
  - Neutropenia [Recovering/Resolving]
  - Pelvic pain [Recovering/Resolving]
  - Fall [Unknown]
  - Constipation [Unknown]
  - Asthenia [Recovering/Resolving]
  - Arthralgia [Unknown]

NARRATIVE: CASE EVENT DATE: 201906
